FAERS Safety Report 9333110 (Version 4)
Quarter: 2013Q3

REPORT INFORMATION
  Report Type: Report from Study
  Country: None (occurrence: CA)
  Receive Date: 20130606
  Receipt Date: 20130701
  Transmission Date: 20140515
  Serious: Yes (Other)
  Sender: FDA-Public Use
  Company Number: CA-EISAI INC-E7389-03874-SOL-CA

PATIENT
  Age: 48 Year
  Sex: Female
  Weight: 67 kg

DRUGS (22)
  1. HALAVEN [Suspect]
     Indication: BREAST CANCER METASTATIC
     Dates: start: 20130306
  2. HYDROMORPHONE [Concomitant]
     Route: 042
  3. METADOL [Concomitant]
     Route: 048
  4. METADOL [Concomitant]
     Route: 048
  5. CYMBALTA [Concomitant]
     Route: 048
  6. CYMBALTA [Concomitant]
     Route: 048
  7. OXAZEPAM [Concomitant]
     Route: 048
  8. OXAZEPAM [Concomitant]
     Route: 048
  9. SENOKOT [Concomitant]
     Route: 048
  10. SENOKOT [Concomitant]
     Route: 048
  11. APO-CLOBAZAM [Concomitant]
     Indication: CARCINOMA IN SITU OF SKIN
     Route: 048
  12. APO-CLOBAZAM [Concomitant]
     Route: 048
  13. TOPIRAMATE [Concomitant]
     Indication: CONVULSION
     Route: 048
  14. TOPIRAMATE [Concomitant]
     Route: 048
  15. DEXAMETHASONE [Concomitant]
     Route: 048
  16. DEXAMETHASONE [Concomitant]
     Route: 048
  17. FENTANYL [Concomitant]
     Route: 048
  18. FENTANYL [Concomitant]
     Route: 048
  19. PANTOPRAZOLE [Concomitant]
     Route: 048
  20. PANTOPRAZOLE [Concomitant]
     Route: 048
  21. RATIO NYSTATIN SUSPENSION [Concomitant]
     Indication: PROPHYLAXIS
     Route: 048
     Dates: start: 20130513
  22. RATIO NYSTATIN SUSPENSION [Concomitant]
     Route: 048

REACTIONS (14)
  - Neoplasm skin [Unknown]
  - Infusion site pain [Unknown]
  - Catheter site bruise [Unknown]
  - Musculoskeletal pain [Unknown]
  - Wound [Unknown]
  - Abdominal distension [Unknown]
  - Weight decreased [Unknown]
  - Arthralgia [Unknown]
  - Urinary tract infection [Recovered/Resolved]
  - Back pain [Unknown]
  - Asthenia [Unknown]
  - Rash pruritic [Unknown]
  - Dyspnoea [Unknown]
  - Blood pressure decreased [Unknown]
